FAERS Safety Report 4459320-7 (Version None)
Quarter: 2004Q3

REPORT INFORMATION
  Report Type: 
  Country: None (occurrence: None)
  Receive Date: 20040923
  Receipt Date: 20040923
  Transmission Date: 20050211
  Serious: No
  Sender: FDA-Public Use
  Company Number: None

PATIENT
  Age: 64 Year
  Sex: Male
  Weight: 96 kg

DRUGS (6)
  1. CARIMUNE [Suspect]
     Indication: DEMYELINATING POLYNEUROPATHY
     Dosage: SEE IMAGE
     Route: 042
     Dates: start: 20040916, end: 20040917
  2. LIPITOR [Concomitant]
  3. LANOXIN [Concomitant]
  4. LISINOPRIL AND HYDROCHLOROTHIAZIDE [Concomitant]
  5. COUMADIN [Concomitant]
  6. CARIMUNE [Suspect]

REACTIONS (4)
  - HEADACHE [None]
  - PAIN [None]
  - PYREXIA [None]
  - RENAL FAILURE ACUTE [None]
